FAERS Safety Report 4816880-1 (Version None)
Quarter: 2005Q4

REPORT INFORMATION
  Report Type: 
  Country: None (occurrence: None)
  Receive Date: 20051031
  Receipt Date: 20051031
  Transmission Date: 20060501
  Serious: Yes (Hospitalization)
  Sender: FDA-Public Use
  Company Number: None

PATIENT
  Age: 61 Year
  Sex: Male

DRUGS (6)
  1. FUROSEMIDE [Suspect]
     Indication: HYPERTENSION
     Dosage: 40 MG QD
     Dates: start: 20030101
  2. ASPIRIN [Concomitant]
  3. ETODOLAC [Concomitant]
  4. LORTAB [Concomitant]
  5. SERTRALINE HCL [Concomitant]
  6. M.V.I. [Concomitant]

REACTIONS (1)
  - RENAL FAILURE ACUTE [None]
